FAERS Safety Report 7260699-1 (Version None)
Quarter: 2011Q1

REPORT INFORMATION
  Report Type: 
  Country: None (occurrence: None)
  Receive Date: 20110130
  Receipt Date: 20101220
  Transmission Date: 20110831
  Serious: No
  Sender: FDA-Public Use
  Company Number: US-ABBOTT-10P-163-0693143-00

PATIENT
  Sex: Female
  Weight: 59.474 kg

DRUGS (3)
  1. BLOOD PRESSURE MEDICATION [Suspect]
     Indication: HYPERTENSION
  2. HUMIRA [Suspect]
     Indication: RHEUMATOID ARTHRITIS
     Route: 058
     Dates: end: 20100901
  3. POTASSIUM [Concomitant]
     Indication: PRODUCT USED FOR UNKNOWN INDICATION

REACTIONS (4)
  - JOINT SWELLING [None]
  - SINUSITIS [None]
  - WEIGHT DECREASED [None]
  - MALAISE [None]
